FAERS Safety Report 5166518-1 (Version None)
Quarter: 2006Q4

REPORT INFORMATION
  Report Type: 
  Country: None (occurrence: None)
  Receive Date: 20061129
  Receipt Date: 20061117
  Transmission Date: 20070319
  Serious: Yes (Disabling)
  Sender: FDA-Public Use
  Company Number: 15063

PATIENT
  Age: 45 Year
  Sex: Male

DRUGS (8)
  1. DOPAMINE [Suspect]
     Indication: SHOCK
     Dosage: 10 MCG/KG PER MINUTE IV
     Route: 042
  2. DOPAMINE [Suspect]
     Indication: HYPOTENSION
     Dosage: 5 MCG/KG PER MINUTE IV
     Route: 042
  3. DOPAMINE [Suspect]
     Indication: SHOCK
     Dosage: 20 MCG/KG PER MINUTE
  4. CEFTAZIDIME [Concomitant]
  5. CLOXACILLIN SODIUM [Concomitant]
  6. METRONIDAZOLE [Concomitant]
  7. PHENYTOIN SODIUM CAP [Concomitant]
  8. PHENOBARBITONE [Concomitant]

REACTIONS (16)
  - ALANINE AMINOTRANSFERASE INCREASED [None]
  - ASPARTATE AMINOTRANSFERASE INCREASED [None]
  - COLLAGEN-VASCULAR DISEASE [None]
  - CONNECTIVE TISSUE DISORDER [None]
  - CREPITATIONS [None]
  - CYANOSIS [None]
  - DEPRESSED LEVEL OF CONSCIOUSNESS [None]
  - DYSPNOEA [None]
  - GANGRENE [None]
  - GENERAL PHYSICAL HEALTH DETERIORATION [None]
  - HYPERBILIRUBINAEMIA [None]
  - HYPOXIA [None]
  - PYREXIA [None]
  - RENAL FAILURE [None]
  - TREATMENT NONCOMPLIANCE [None]
  - WHITE BLOOD CELL COUNT INCREASED [None]
